FAERS Safety Report 9758392 (Version 1)
Quarter: 2013Q4

REPORT INFORMATION
  Report Type: Spontaneous
  Country: CA (occurrence: CA)
  Receive Date: 20131216
  Receipt Date: 20131216
  Transmission Date: 20140711
  Serious: Yes (Death, Other)
  Sender: FDA-Public Use
  Company Number: CA-AMGEN-CANSP2013087320

PATIENT
  Age: 69 Year
  Sex: Male

DRUGS (1)
  1. XGEVA [Suspect]
     Indication: NEOPLASM MALIGNANT
     Dosage: 120 MG, UNK
     Route: 065
     Dates: start: 20130121, end: 20131128

REACTIONS (4)
  - Neoplasm malignant [Fatal]
  - Organ failure [Fatal]
  - Haemorrhage [Unknown]
  - Pelvic fracture [Unknown]
